FAERS Safety Report 5331059-5 (Version None)
Quarter: 2007Q2

REPORT INFORMATION
  Report Type: 
  Country: None (occurrence: None)
  Receive Date: 20070522
  Receipt Date: 20070517
  Transmission Date: 20071010
  Serious: Yes (Death)
  Sender: FDA-Public Use
  Company Number: B0469247A

PATIENT
  Age: 7 Year
  Sex: Female
  Weight: 20 kg

DRUGS (1)
  1. FLOLAN [Suspect]
     Route: 065
     Dates: start: 20070216

REACTIONS (2)
  - DEATH [None]
  - DISEASE PROGRESSION [None]
